FAERS Safety Report 7290626-2 (Version None)
Quarter: 2011Q1

REPORT INFORMATION
  Report Type: 
  Country: None (occurrence: None)
  Receive Date: 20110121
  Receipt Date: 20110119
  Transmission Date: 20110831
  Serious: Yes (Other)
  Sender: FDA-Public Use
  Company Number: 2011P1003964

PATIENT
  Age: 36 Year
  Sex: Male
  Weight: 79.3795 kg

DRUGS (4)
  1. ORPHENADRINE CITRATE [Concomitant]
  2. VALIUM [Concomitant]
  3. METHYLPREDNISOLONE [Suspect]
     Indication: SURGERY
     Dosage: QD; PO
     Route: 048
     Dates: start: 20110113, end: 20110117
  4. VICODIN [Concomitant]

REACTIONS (1)
  - PRIAPISM [None]
